FAERS Safety Report 17486295 (Version 2)
Quarter: 2020Q1

REPORT INFORMATION
  Report Type: Spontaneous
  Country: US (occurrence: US)
  Receive Date: 20200303
  Receipt Date: 20200305
  Transmission Date: 20200409
  Serious: No
  Sender: FDA-Public Use
  Company Number: US-009507513-2003USA000580

PATIENT
  Age: 59 Year
  Sex: Female

DRUGS (1)
  1. PROVENTIL [Suspect]
     Active Substance: ALBUTEROL
     Indication: BRONCHITIS
     Dosage: 2 PUFFS EVERY FOUR HOURS AS NEEDED, PACKAGE SIZE: 6.7 GRAMS
     Dates: start: 20200228, end: 20200301

REACTIONS (5)
  - Poor quality device used [Unknown]
  - Product use in unapproved indication [Unknown]
  - Product dose omission [Unknown]
  - Wrong technique in product usage process [Unknown]
  - Product quality issue [Unknown]

NARRATIVE: CASE EVENT DATE: 20200228
